FAERS Safety Report 7650572-9 (Version None)
Quarter: 2011Q3

REPORT INFORMATION
  Report Type: 
  Country: None (occurrence: None)
  Receive Date: 20110802
  Receipt Date: 20110729
  Transmission Date: 20111222
  Serious: Yes (Other)
  Sender: FDA-Public Use
  Company Number: DE-ABBOTT-11P-062-0836273-00

PATIENT
  Sex: Male
  Weight: 83 kg

DRUGS (2)
  1. LEFLUNOMIDE [Concomitant]
     Indication: PROSTATIC SPECIFIC ANTIGEN
     Dates: start: 20110601
  2. HUMIRA [Suspect]
     Indication: PROSTATIC SPECIFIC ANTIGEN
     Route: 058
     Dates: start: 20091201, end: 20110601

REACTIONS (1)
  - INGUINAL HERNIA [None]
